FAERS Safety Report 6033359-2 (Version None)
Quarter: 2009Q1

REPORT INFORMATION
  Report Type: 
  Country: None (occurrence: None)
  Receive Date: 20090109
  Receipt Date: 20081229
  Transmission Date: 20090719
  Serious: Yes (Death, Other)
  Sender: FDA-Public Use
  Company Number: JP-BAXTER-2009BH000013

PATIENT
  Age: 48 Year
  Sex: Female

DRUGS (5)
  1. ENDOXAN BAXTER [Suspect]
     Indication: DIFFUSE LARGE B-CELL LYMPHOMA STAGE II
     Route: 042
     Dates: start: 20060101, end: 20060101
  2. PREDNISOLONE [Suspect]
     Indication: DIFFUSE LARGE B-CELL LYMPHOMA STAGE II
     Route: 048
     Dates: start: 20060101, end: 20060101
  3. VINCRISTINE SULFATE [Suspect]
     Indication: DIFFUSE LARGE B-CELL LYMPHOMA STAGE II
     Route: 042
     Dates: start: 20060101, end: 20060101
  4. DOXORUBICIN HCL [Suspect]
     Indication: DIFFUSE LARGE B-CELL LYMPHOMA STAGE II
     Route: 042
     Dates: start: 20060101, end: 20060101
  5. RITUXIMAB [Suspect]
     Indication: DIFFUSE LARGE B-CELL LYMPHOMA STAGE II
     Route: 042
     Dates: start: 20060101, end: 20060101

REACTIONS (6)
  - ADENOVIRUS INFECTION [None]
  - BK VIRUS INFECTION [None]
  - JC VIRUS INFECTION [None]
  - PNEUMOCYSTIS JIROVECI PNEUMONIA [None]
  - PROGRESSIVE MULTIFOCAL LEUKOENCEPHALOPATHY [None]
  - VIRAL HAEMORRHAGIC CYSTITIS [None]
